FAERS Safety Report 9920868 (Version 3)
Quarter: 2014Q1

REPORT INFORMATION
  Report Type: Spontaneous
  Country: DE (occurrence: DE)
  Receive Date: 20140225
  Receipt Date: 20140325
  Transmission Date: 20141002
  Serious: Yes (Other)
  Sender: FDA-Public Use
  Company Number: DE-AMGEN-DEUSP2013004749

PATIENT
  Age: 68 Year
  Sex: Female
  Weight: 54 kg

DRUGS (4)
  1. PROLIA [Suspect]
     Indication: OSTEOPOROSIS
     Dosage: 60 MG, 1 X
     Route: 058
     Dates: start: 201207
  2. PROLIA [Suspect]
     Indication: RADIUS FRACTURE
  3. L-THYROXIN [Concomitant]
     Indication: THYROID DISORDER
     Dosage: 100 UNK, QD
     Dates: start: 1972
  4. VIGANTOLETTEN [Concomitant]
     Indication: OSTEOPOROSIS
     Dosage: 1000 UNK, QD
     Dates: start: 201206

REACTIONS (5)
  - Liver injury [Unknown]
  - Nephrolithiasis [Unknown]
  - Renal disorder [Unknown]
  - Thyroxine decreased [Recovering/Resolving]
  - Gastrointestinal disorder [Recovered/Resolved]
